FAERS Safety Report 4494567-5 (Version None)
Quarter: 2004Q4

REPORT INFORMATION
  Report Type: 
  Country: None (occurrence: None)
  Receive Date: 20041103
  Receipt Date: 20041022
  Transmission Date: 20050328
  Serious: Yes (Hospitalization, Other)
  Sender: FDA-Public Use
  Company Number: A-CH2003-04033

PATIENT
  Age: 68 Year
  Sex: Female

DRUGS (12)
  1. TRACLEER [Suspect]
     Indication: PULMONARY HYPERTENSION
     Dosage: SEE IMAGE
     Route: 048
     Dates: start: 20030924, end: 20031127
  2. TRACLEER [Suspect]
     Indication: PULMONARY HYPERTENSION
     Dosage: SEE IMAGE
     Route: 048
     Dates: start: 20031201
  3. LASIX [Concomitant]
  4. ZYLORIC (ALLOPURINOL) [Concomitant]
  5. OMEPRAZOLE [Concomitant]
  6. EMOLLIENTS AND PROTECTIVES [Concomitant]
  7. APROVEL (IRBESARTAN) [Concomitant]
  8. HYPERIUM (RILMENIDINE) [Concomitant]
  9. ATORVASTATIN CALCIUM [Concomitant]
  10. DIGOXIN [Concomitant]
  11. ERYTHROPOIETIN (ERYTHROPOIETIN) [Concomitant]
  12. HUMALOG [Concomitant]

REACTIONS (4)
  - ASCITES [None]
  - CONDITION AGGRAVATED [None]
  - ECZEMA [None]
  - RENAL FAILURE [None]
